FAERS Safety Report 19605438 (Version 1)
Quarter: 2021Q3

REPORT INFORMATION
  Report Type: Spontaneous
  Country: SE (occurrence: SE)
  Receive Date: 20210724
  Receipt Date: 20210724
  Transmission Date: 20211014
  Serious: Yes (Hospitalization, Other)
  Sender: FDA-Public Use
  Company Number: SE-TEVA-2021-SE-1934191

PATIENT
  Age: 79 Year
  Sex: Female

DRUGS (1)
  1. BICALUTAMIDE TEVA [Suspect]
     Active Substance: BICALUTAMIDE
     Dosage: 50 MILLIGRAM DAILY;
     Route: 048
     Dates: start: 2021, end: 202107

REACTIONS (4)
  - Dizziness [Recovered/Resolved]
  - Product administered by wrong person [Unknown]
  - Peripheral swelling [Recovered/Resolved]
  - Arrhythmia [Recovering/Resolving]

NARRATIVE: CASE EVENT DATE: 2021
